FAERS Safety Report 20564465 (Version 1)
Quarter: 2022Q1

REPORT INFORMATION
  Report Type: Spontaneous
  Country: JP (occurrence: JP)
  Receive Date: 20220308
  Receipt Date: 20220308
  Transmission Date: 20220424
  Serious: Yes (Hospitalization)
  Sender: FDA-Public Use
  Company Number: JP-DSJP-DSJ-2022-107426

PATIENT
  Age: 48 Year
  Sex: Female

DRUGS (7)
  1. DENOSUMAB [Suspect]
     Active Substance: DENOSUMAB
     Indication: Metastases to spine
     Dosage: UNK
     Route: 065
     Dates: start: 201805
  2. ERIBULIN [Suspect]
     Active Substance: ERIBULIN
     Indication: Breast cancer
     Dosage: 2 MG PER WEEK, FOR 2 OF EVERY 3 WEEKS
     Route: 065
     Dates: start: 201903
  3. ERIBULIN [Suspect]
     Active Substance: ERIBULIN
     Indication: Tumour marker increased
     Dosage: UNK
     Route: 065
  4. ERIBULIN [Suspect]
     Active Substance: ERIBULIN
     Indication: Metastases to spine
     Dosage: UNK
     Route: 065
  5. TRASTUZUMAB [Concomitant]
     Active Substance: TRASTUZUMAB
     Indication: Metastases to spine
     Dosage: UNK
     Route: 065
     Dates: start: 201805
  6. TAMOXIFEN CITRATE [Concomitant]
     Active Substance: TAMOXIFEN CITRATE
     Indication: Metastases to spine
     Dosage: UNK
     Route: 065
     Dates: start: 201805, end: 201903
  7. PERTUZUMAB [Concomitant]
     Active Substance: PERTUZUMAB
     Indication: Metastases to spine
     Dosage: UNK
     Route: 065
     Dates: start: 201805

REACTIONS (1)
  - Demyelinating polyneuropathy [Recovered/Resolved]
